FAERS Safety Report 9527496 (Version 1)
Quarter: 2013Q1

REPORT INFORMATION
  Report Type: Spontaneous
  Country: US (occurrence: None)
  Receive Date: 20130314
  Receipt Date: 20130314
  Transmission Date: 20140127
  Serious: No
  Sender: FDA-Public Use
  Company Number: 1211USA004075

PATIENT
  Age: 47 Year
  Sex: Female

DRUGS (3)
  1. PEGINTRON [Suspect]
     Indication: HEPATITIS C
     Dates: start: 20121106, end: 20130204
  2. RIBAVIRIN [Suspect]
     Indication: HEPATITIS C
     Route: 048
     Dates: start: 20121106, end: 20130204
  3. VICTRELIS [Suspect]
     Indication: HEPATITIS C
     Dates: start: 20121203, end: 20130204

REACTIONS (9)
  - Influenza [None]
  - Heart rate irregular [None]
  - Heart rate increased [None]
  - Myalgia [None]
  - Chills [None]
  - Pyrexia [None]
  - Abdominal distension [None]
  - Arthralgia [None]
  - Abdominal pain [None]
